FAERS Safety Report 24078478 (Version 3)
Quarter: 2024Q3

REPORT INFORMATION
  Report Type: Spontaneous
  Country: US (occurrence: US)
  Receive Date: 20240711
  Receipt Date: 20240816
  Transmission Date: 20241017
  Serious: Yes (Other)
  Sender: PFIZER
  Company Number: US-PFIZER INC-202400211088

PATIENT
  Age: 66 Year
  Sex: Male

DRUGS (1)
  1. INLYTA [Suspect]
     Active Substance: AXITINIB
     Dosage: TAKE 1 TABLET TWICE DAILY
     Dates: start: 20240610

REACTIONS (3)
  - Pleural effusion [Recovering/Resolving]
  - Fistula repair [Not Recovered/Not Resolved]
  - Blood pressure increased [Not Recovered/Not Resolved]

NARRATIVE: CASE EVENT DATE: 20240101
